FAERS Safety Report 5487047-1 (Version None)
Quarter: 2007Q4

REPORT INFORMATION
  Report Type: 
  Country: None (occurrence: None)
  Receive Date: 20071016
  Receipt Date: 20071011
  Transmission Date: 20080405
  Serious: Yes (Other)
  Sender: FDA-Public Use
  Company Number: US-JNJFOC-20071003266

PATIENT
  Age: 12 Month
  Sex: Male

DRUGS (1)
  1. CONCENTRATED INFANTS TYLENOL PLUS COLD BUBBLEGUM [Suspect]
     Indication: NASOPHARYNGITIS
     Dosage: UNKNOWN

REACTIONS (1)
  - CONVULSION [None]
